FAERS Safety Report 4843685-8 (Version None)
Quarter: 2005Q4

REPORT INFORMATION
  Report Type: 
  Country: None (occurrence: None)
  Receive Date: 20051202
  Receipt Date: 20051123
  Transmission Date: 20060501
  Serious: Yes (Hospitalization)
  Sender: FDA-Public Use
  Company Number: FR-BRISTOL-MYERS SQUIBB COMPANY-13196019

PATIENT
  Age: 77 Year
  Sex: Male

DRUGS (3)
  1. APROVEL TABS [Suspect]
     Indication: HYPERTENSION
     Route: 048
     Dates: start: 20041015, end: 20051014
  2. EBIXA [Concomitant]
     Indication: DEMENTIA ALZHEIMER'S TYPE
  3. ZANIDIP [Concomitant]

REACTIONS (3)
  - BLOOD CREATINE PHOSPHOKINASE INCREASED [None]
  - PYREXIA [None]
  - RHABDOMYOLYSIS [None]
